FAERS Safety Report 14223683 (Version 2)
Quarter: 2017Q4

REPORT INFORMATION
  Report Type: Report from Study
  Country: None (occurrence: US)
  Receive Date: 20171124
  Receipt Date: 20171222
  Transmission Date: 20180321
  Serious: Yes (Other)
  Sender: FDA-Public Use
  Company Number: US-ABBVIE-17K-163-2126215-00

PATIENT
  Sex: Female

DRUGS (2)
  1. HUMIRA [Suspect]
     Active Substance: ADALIMUMAB
     Indication: RHEUMATOID ARTHRITIS
     Route: 058
  2. HUMIRA [Suspect]
     Active Substance: ADALIMUMAB
     Route: 058

REACTIONS (6)
  - Limb discomfort [Unknown]
  - Morton^s neuralgia [Unknown]
  - Arthropathy [Unknown]
  - Back pain [Unknown]
  - Ankle arthroplasty [Unknown]
  - Post procedural complication [Unknown]

NARRATIVE: CASE EVENT DATE: 201709
